FAERS Safety Report 19399515 (Version 7)
Quarter: 2023Q4

REPORT INFORMATION
  Report Type: Report from Study
  Country: CA (occurrence: CA)
  Receive Date: 20210610
  Receipt Date: 20231222
  Transmission Date: 20240110
  Serious: Yes (Hospitalization, Other)
  Sender: FDA-Public Use
  Company Number: PHHY2019CA117962

PATIENT
  Age: 76 Year
  Sex: Male

DRUGS (7)
  1. COSENTYX [Suspect]
     Active Substance: SECUKINUMAB
     Indication: Psoriasis
     Dosage: 300 MG, QMO
     Route: 058
     Dates: start: 20190516
  2. COSENTYX [Suspect]
     Active Substance: SECUKINUMAB
     Dosage: 300 MG, QW
     Route: 058
     Dates: start: 20190530
  3. COSENTYX [Suspect]
     Active Substance: SECUKINUMAB
     Dosage: 300 MG, QMO
     Route: 058
     Dates: start: 20190613
  4. COSENTYX [Suspect]
     Active Substance: SECUKINUMAB
     Dosage: 300 MG, QMO
     Route: 058
     Dates: start: 201907
  5. COSENTYX [Suspect]
     Active Substance: SECUKINUMAB
     Dosage: 300 MG, QMO
     Route: 058
     Dates: start: 20200317
  6. BETAMETHASONE DIPROPIONATE [Concomitant]
     Active Substance: BETAMETHASONE DIPROPIONATE
     Indication: Product used for unknown indication
     Dosage: UNK
     Route: 061
  7. ACITRETIN [Concomitant]
     Active Substance: ACITRETIN
     Indication: Product used for unknown indication
     Dosage: UNK
     Route: 065

REACTIONS (25)
  - Hydrocephalus [Unknown]
  - Fall [Unknown]
  - Disorientation [Unknown]
  - Memory impairment [Unknown]
  - Hypothalamo-pituitary disorder [Unknown]
  - Pyrexia [Unknown]
  - Balance disorder [Recovering/Resolving]
  - Amnesia [Recovering/Resolving]
  - Dizziness [Recovered/Resolved]
  - Dizziness [Recovering/Resolving]
  - Fatigue [Unknown]
  - Discomfort [Unknown]
  - Swelling [Unknown]
  - Ear disorder [Unknown]
  - Anxiety [Unknown]
  - Asthenia [Unknown]
  - Pain of skin [Unknown]
  - Emotional distress [Unknown]
  - Sexual dysfunction [Unknown]
  - Psoriasis [Recovering/Resolving]
  - Pruritus [Not Recovered/Not Resolved]
  - Erythema [Unknown]
  - Skin swelling [Unknown]
  - Skin plaque [Unknown]
  - Therapeutic response decreased [Unknown]

NARRATIVE: CASE EVENT DATE: 20190501
